FAERS Safety Report 13526480 (Version 1)
Quarter: 2017Q2

REPORT INFORMATION
  Report Type: Spontaneous
  Country: US (occurrence: US)
  Receive Date: 20170508
  Receipt Date: 20170508
  Transmission Date: 20170830
  Serious: No
  Sender: FDA-Public Use
  Company Number: None

PATIENT
  Age: 46 Year
  Sex: Female
  Weight: 95.85 kg

DRUGS (7)
  1. VITAMIN D [Concomitant]
     Active Substance: CHOLECALCIFEROL
  2. IRON [Concomitant]
     Active Substance: IRON
  3. COLCRYS [Concomitant]
     Active Substance: COLCHICINE
  4. ALEVE [Concomitant]
     Active Substance: NAPROXEN SODIUM
  5. TUMS [Concomitant]
     Active Substance: CALCIUM CARBONATE
  6. ILARIS [Suspect]
     Active Substance: CANAKINUMAB
     Indication: FAMILIAL MEDITERRANEAN FEVER
     Dosage: QUANTITY:2 INJECTION(S);OTHER FREQUENCY:EVERY 28 DAYS;OTHER ROUTE:SUBCUTANEOUS INJECTION?
     Route: 058
     Dates: start: 20170506
  7. PRILOSEC [Concomitant]
     Active Substance: OMEPRAZOLE MAGNESIUM

REACTIONS (9)
  - Paraesthesia [None]
  - Hypoaesthesia [None]
  - Pain in extremity [None]
  - Chest pain [None]
  - Joint swelling [None]
  - Tremor [None]
  - Arthralgia [None]
  - Local swelling [None]
  - Peripheral swelling [None]

NARRATIVE: CASE EVENT DATE: 20170506
